FAERS Safety Report 4708997-7 (Version None)
Quarter: 2005Q3

REPORT INFORMATION
  Report Type: 
  Country: None (occurrence: None)
  Receive Date: 20050707
  Receipt Date: 20050621
  Transmission Date: 20060218
  Serious: Yes (Hospitalization, Other)
  Sender: FDA-Public Use
  Company Number: HQWYE603821JUN05

PATIENT
  Age: 71 Year
  Sex: Male
  Weight: 101.24 kg

DRUGS (10)
  1. TACROLIMUS, CONTROL FOR SIROLIMUS (TACROLIMUS, CONTROL FOR SIROLIMUS, [Suspect]
     Indication: PROPHYLAXIS AGAINST TRANSPLANT REJECTION
     Dosage: 3 MG 1X PER 1 DAY, ORAL
     Route: 048
     Dates: start: 20040211
  2. ECOTRIN (ACETYLSALICLYIC ACID) [Concomitant]
  3. ACULAR [Concomitant]
  4. STRESSTABS (VITAMIN B-COMPLEX/VITAMIN C) [Concomitant]
  5. MAGNESIUM OXIDE (MAGNESIUM OXIDE) [Concomitant]
  6. BENICAR [Concomitant]
  7. COUMADIN [Concomitant]
  8. NORVASC [Concomitant]
  9. DIGOXIN [Concomitant]
  10. CARDIZEM [Concomitant]

REACTIONS (8)
  - ANURIA [None]
  - BENIGN PROSTATIC HYPERPLASIA [None]
  - BLADDER DISCOMFORT [None]
  - BLOOD CREATININE INCREASED [None]
  - NEOPLASM MALIGNANT [None]
  - PROCEDURAL COMPLICATION [None]
  - URETERIC OBSTRUCTION [None]
  - URINARY TRACT OBSTRUCTION [None]
